FAERS Safety Report 5209190-4 (Version None)
Quarter: 2007Q1

REPORT INFORMATION
  Report Type: 
  Country: None (occurrence: None)
  Receive Date: 20070111
  Receipt Date: 20070102
  Transmission Date: 20070707
  Serious: Yes (Other)
  Sender: FDA-Public Use
  Company Number: 2006SP008255

PATIENT
  Age: 72 Year
  Sex: Male
  Weight: 113.3993 kg

DRUGS (24)
  1. ALBUTEROL SULFATE [Suspect]
     Indication: ASTHMA
     Dosage: 0 DF; UNK; PO
     Route: 048
  2. ALBUTEROL SULFATE [Suspect]
     Indication: ASTHMA
     Dosage: 4 MG QD PO
     Route: 048
  3. FLUNISOLIDE [Concomitant]
  4. FORMOTEROL FUMARATE [Concomitant]
  5. IPRATROPIUM BROMIDE [Concomitant]
  6. CROMOLYN SODIUM [Concomitant]
  7. DIPHENHYDRAMINE HYDROCHLORIDE [Concomitant]
  8. CARISOPRODOL [Concomitant]
  9. NAPROXEN SODIUM [Concomitant]
  10. AMANTADINE HCL [Concomitant]
  11. VITAMIN E [Concomitant]
  12. VITAMIN B6 [Concomitant]
  13. VITAMIN B-12 [Concomitant]
  14. FOLIC ACID [Concomitant]
  15. NIACIN [Concomitant]
  16. MAGNESIUM OXIDE [Concomitant]
  17. POTASSOI, GLUCONATE [Concomitant]
  18. ASPIRIN [Concomitant]
  19. SIMVASTATIN [Concomitant]
  20. HYDROCHLOROTHIAZIDE [Concomitant]
  21. ATENOLOL [Concomitant]
  22. ISOSORBIDE DINITRATE [Concomitant]
  23. NITROGLYCERIN [Concomitant]
  24. ASMANEX TWISTHALER [Concomitant]

REACTIONS (3)
  - MUSCLE SPASMS [None]
  - NASOPHARYNGITIS [None]
  - NEUROLOGICAL SYMPTOM [None]
